FAERS Safety Report 5829110-9 (Version None)
Quarter: 2008Q3

REPORT INFORMATION
  Report Type: 
  Country: None (occurrence: None)
  Receive Date: 20080731
  Receipt Date: 20080729
  Transmission Date: 20090109
  Serious: Yes (Other)
  Sender: FDA-Public Use
  Company Number: NO-ASTRAZENECA-2008SE00191

PATIENT
  Age: 9853 Day
  Sex: Female

DRUGS (5)
  1. PROPOFOL [Suspect]
     Indication: SEDATIVE THERAPY
     Route: 042
     Dates: start: 20080102, end: 20080102
  2. PENTOTHAL [Suspect]
     Indication: SEDATIVE THERAPY
     Dates: start: 20080102, end: 20080102
  3. FENTANYL-100 [Suspect]
     Indication: PAIN
     Dates: start: 20080102, end: 20080102
  4. CURACIT [Suspect]
     Indication: ENDOTRACHEAL INTUBATION
  5. ACETAMINOPHEN [Concomitant]

REACTIONS (2)
  - BLOOD PRESSURE DECREASED [None]
  - SWELLING FACE [None]
